FAERS Safety Report 14689351 (Version 2)
Quarter: 2018Q2

REPORT INFORMATION
  Report Type: Spontaneous
  Country: AU (occurrence: AU)
  Receive Date: 20180328
  Receipt Date: 20180417
  Transmission Date: 20180711
  Serious: Yes (Disabling)
  Sender: FDA-Public Use
  Company Number: AU-IGSA-SR10006054

PATIENT
  Age: 40 Year
  Sex: Female
  Weight: 62 kg

DRUGS (5)
  1. SEROQUEL [Concomitant]
     Active Substance: QUETIAPINE FUMARATE
  2. AVANZA [Concomitant]
     Active Substance: MIRTAZAPINE
  3. RIVOTRIL [Concomitant]
     Active Substance: CLONAZEPAM
  4. FLEBOGAMMA DIF [Suspect]
     Active Substance: HUMAN IMMUNOGLOBULIN G
     Indication: NONINFECTIVE ENCEPHALITIS
     Dosage: 25 G, UNK
     Route: 042
     Dates: start: 20180308, end: 20180308
  5. FLEBOGAMMA DIF [Suspect]
     Active Substance: HUMAN IMMUNOGLOBULIN G
     Indication: INFLAMMATION

REACTIONS (10)
  - Migraine [Recovered/Resolved]
  - Hyperacusis [Recovered/Resolved]
  - Nausea [Recovered/Resolved]
  - Myalgia [Recovered/Resolved]
  - Headache [Recovered/Resolved]
  - Fatigue [Recovered/Resolved]
  - Condition aggravated [Recovered/Resolved]
  - Malaise [Recovered/Resolved]
  - Photophobia [Recovered/Resolved]
  - Dizziness [Recovered/Resolved]

NARRATIVE: CASE EVENT DATE: 20180310
